FAERS Safety Report 4484813-6 (Version None)
Quarter: 2004Q4

REPORT INFORMATION
  Report Type: 
  Country: None (occurrence: None)
  Receive Date: 20041025
  Receipt Date: 20041015
  Transmission Date: 20050328
  Serious: Yes (Hospitalization)
  Sender: FDA-Public Use
  Company Number: NO-MERCK-0410NOR00017

PATIENT
  Age: 77 Year
  Sex: Female

DRUGS (6)
  1. FOSAMAX [Suspect]
     Indication: OSTEOPOROSIS
     Route: 048
     Dates: start: 19970101, end: 20040921
  2. ASPIRIN AND MAGNESIUM OXIDE [Suspect]
     Indication: CEREBRAL INFARCTION
     Route: 048
     Dates: start: 19950101, end: 20040921
  3. PROCHLORPERAZINE MALEATE [Concomitant]
     Indication: DIZZINESS
     Route: 065
     Dates: start: 20010101, end: 20040922
  4. BENSERAZIDE HYDROCHLORIDE AND LEVODOPA [Concomitant]
     Indication: PARKINSON'S DISEASE
     Route: 048
     Dates: start: 20030301
  5. SELEGILINE HYDROCHLORIDE [Concomitant]
     Indication: PARKINSON'S DISEASE
     Route: 048
     Dates: start: 20030301
  6. CELECOXIB [Suspect]
     Indication: MYALGIA
     Route: 048
     Dates: start: 20040910, end: 20040921

REACTIONS (6)
  - ANAEMIA [None]
  - DRUG INTERACTION [None]
  - DUODENAL ULCER HAEMORRHAGE [None]
  - GASTRIC ULCER [None]
  - HAEMORRHAGE [None]
  - MELAENA [None]
